FAERS Safety Report 8386185-3 (Version None)
Quarter: 2012Q2

REPORT INFORMATION
  Report Type: 
  Country: None (occurrence: None)
  Receive Date: 20120525
  Receipt Date: 20120515
  Transmission Date: 20120825
  Serious: Yes (Hospitalization, Other)
  Sender: FDA-Public Use
  Company Number: US-JNJFOC-20100303794

PATIENT
  Sex: Female

DRUGS (10)
  1. LEVAQUIN [Suspect]
     Indication: PNEUMONIA
     Dosage: FOR 10 DAYS
     Route: 048
     Dates: start: 20070901
  2. VYTORIN [Concomitant]
     Route: 065
  3. ASPIRIN [Concomitant]
     Route: 065
  4. GINKO BILOBA [Concomitant]
     Route: 065
  5. SYNTHROID [Concomitant]
     Route: 065
  6. BENICAR [Concomitant]
     Route: 065
  7. LEVAQUIN [Suspect]
     Route: 042
     Dates: start: 20070905, end: 20070905
  8. PROTONIX [Concomitant]
     Route: 065
  9. ZIAC [Concomitant]
     Route: 065
  10. MULTI-VITAMINS [Concomitant]
     Route: 065

REACTIONS (5)
  - PAIN [None]
  - ROTATOR CUFF SYNDROME [None]
  - CATARACT [None]
  - EMOTIONAL DISORDER [None]
  - TENDON RUPTURE [None]
